FAERS Safety Report 4485028-8 (Version None)
Quarter: 2004Q3

REPORT INFORMATION
  Report Type: 
  Country: None (occurrence: None)
  Receive Date: 20040921
  Receipt Date: 20040219
  Transmission Date: 20050211
  Serious: Yes (Hospitalization)
  Sender: FDA-Public Use
  Company Number: 163-20785-04020538

PATIENT

DRUGS (3)
  1. THALOMID [Suspect]
     Dosage: 400 MG, UNKNOWN, ORAL
     Route: 048
     Dates: start: 20040101
  2. DEXAMETHASONE [Concomitant]
  3. COUMADIN [Concomitant]

REACTIONS (1)
  - LIVER FUNCTION TEST ABNORMAL [None]
